FAERS Safety Report 8790726 (Version 1)
Quarter: 2012Q4

REPORT INFORMATION
  Report Type: Spontaneous
  Country: US (occurrence: None)
  Receive Date: 20120912
  Receipt Date: 20120912
  Transmission Date: 20130627
  Serious: Yes (Other)
  Sender: FDA-Public Use
  Company Number: None

PATIENT
  Age: 65 Year
  Sex: Female
  Weight: 113.4 kg

DRUGS (2)
  1. METHYLPHENIDATE [Suspect]
     Indication: SLEEP DISORDER
     Dosage: am
     Route: 048
     Dates: start: 20120901, end: 20120907
  2. METHYLPHENIDATE [Suspect]
     Indication: SLEEP DISORDER
     Dosage: noon
     Route: 048

REACTIONS (7)
  - Drug ineffective [None]
  - Headache [None]
  - Dizziness [None]
  - Somnolence [None]
  - Agitation [None]
  - Depressed mood [None]
  - Product substitution issue [None]
